FAERS Safety Report 15991466 (Version 3)
Quarter: 2019Q3

REPORT INFORMATION
  Report Type: Spontaneous
  Country: CH (occurrence: CH)
  Receive Date: 20190221
  Receipt Date: 20190725
  Transmission Date: 20191004
  Serious: Yes (Life-Threatening, Hospitalization, Other)
  Sender: FDA-Public Use
  Company Number: CH-AMGEN-CHESP2019027502

PATIENT
  Age: 44 Year
  Sex: Female

DRUGS (2)
  1. SUMATRIPTAN. [Concomitant]
     Active Substance: SUMATRIPTAN
     Indication: PRODUCT USED FOR UNKNOWN INDICATION
     Dosage: 50 MILLIGRAM, QD
     Route: 048
     Dates: start: 20150713, end: 20180715
  2. AIMOVIG [Suspect]
     Active Substance: ERENUMAB-AOOE
     Indication: MIGRAINE
     Dosage: 70 MILLIGRAM, ONCE/SINGLE
     Route: 065
     Dates: start: 20180716, end: 20180716

REACTIONS (3)
  - Septic shock [Unknown]
  - Necrotising fasciitis [Not Recovered/Not Resolved]
  - Multiple organ dysfunction syndrome [Unknown]
